FAERS Safety Report 9244802 (Version 1)
Quarter: 2013Q2

REPORT INFORMATION
  Report Type: Spontaneous
  Country: FR (occurrence: FR)
  Receive Date: 20130422
  Receipt Date: 20130422
  Transmission Date: 20140414
  Serious: Yes (Hospitalization)
  Sender: FDA-Public Use
  Company Number: PHHY2013FR038247

PATIENT
  Age: 6 Year
  Sex: Female

DRUGS (1)
  1. NEORAL [Suspect]
     Indication: BONE MARROW FAILURE
     Dosage: 100 MG, QD
     Route: 048
     Dates: start: 20121227, end: 20130301

REACTIONS (2)
  - Allodynia [Recovered/Resolved]
  - Paraesthesia [Recovered/Resolved]
